FAERS Safety Report 14354624 (Version 2)
Quarter: 2018Q1

REPORT INFORMATION
  Report Type: Spontaneous
  Country: DE (occurrence: DE)
  Receive Date: 20180105
  Receipt Date: 20180124
  Transmission Date: 20180509
  Serious: Yes (Other)
  Sender: FDA-Public Use
  Company Number: DE-WEST-WARD PHARMACEUTICALS CORP.-DE-H14001-17-05312

PATIENT
  Age: 72 Year
  Sex: Male

DRUGS (52)
  1. PREDNISONE. [Suspect]
     Active Substance: PREDNISONE
     Route: 048
     Dates: start: 20171206
  2. RIXIMYO [Suspect]
     Active Substance: RITUXIMAB
     Dosage: 700 MG (INFUSION RATE 1.7 ML/MIN)
     Route: 041
     Dates: start: 20171114, end: 20171114
  3. KEVATRIL [Concomitant]
     Active Substance: GRANISETRON HYDROCHLORIDE
     Route: 042
     Dates: start: 20171206, end: 20171206
  4. MESNA. [Concomitant]
     Active Substance: MESNA
     Route: 042
     Dates: start: 20171115, end: 20171115
  5. DOXORUBICIN [Suspect]
     Active Substance: DOXORUBICIN
     Dosage: 95 MG (INFUSION RATE 8.3 ML/MIN)
     Route: 041
     Dates: start: 20171115, end: 20171115
  6. PREDNISONE. [Suspect]
     Active Substance: PREDNISONE
     Route: 048
     Dates: start: 20171115, end: 20171115
  7. RIXIMYO [Suspect]
     Active Substance: RITUXIMAB
     Dosage: 700 MG (INFUSION RATE 1.7 ML/MIN)
     Route: 041
     Dates: start: 20171205, end: 20171205
  8. SIMVASTATIN. [Concomitant]
     Active Substance: SIMVASTATIN
     Indication: HYPERTENSION
     Route: 048
     Dates: start: 20170530
  9. TAVEGIL [Concomitant]
     Active Substance: CLEMASTINE FUMARATE
     Indication: PRODUCT USED FOR UNKNOWN INDICATION
     Route: 042
     Dates: start: 20171205, end: 20171205
  10. MESNA. [Concomitant]
     Active Substance: MESNA
     Indication: PROPHYLAXIS
     Route: 042
     Dates: start: 20171025, end: 20171025
  11. CYCLOPHOSPHAMIDE. [Suspect]
     Active Substance: CYCLOPHOSPHAMIDE
     Dosage: 1400 MG (INFUSION RATE 4.17 ML/MIN)
     Route: 041
     Dates: start: 20171206, end: 20171206
  12. VINCRISTINE [Suspect]
     Active Substance: VINCRISTINE
     Indication: DIFFUSE LARGE B-CELL LYMPHOMA
     Dosage: 1 MG (INFUSION RATE 1 ML/MIN)
     Route: 041
     Dates: start: 20171020, end: 20171020
  13. RANITIDIN [Concomitant]
     Active Substance: RANITIDINE HYDROCHLORIDE
     Indication: PROPHYLAXIS
     Route: 042
     Dates: start: 20171024, end: 20171024
  14. AMPHO MORONAL [Concomitant]
     Active Substance: AMPHOTERICIN B
     Route: 048
     Dates: start: 20171205, end: 20171211
  15. DEKRISTOL [Concomitant]
     Active Substance: CHOLECALCIFEROL
     Indication: PRODUCT USED FOR UNKNOWN INDICATION
     Route: 065
     Dates: start: 20171124
  16. PREDNISONE. [Suspect]
     Active Substance: PREDNISONE
     Indication: DIFFUSE LARGE B-CELL LYMPHOMA
     Route: 048
     Dates: start: 20171025
  17. CYCLOPHOSPHAMIDE. [Suspect]
     Active Substance: CYCLOPHOSPHAMIDE
     Indication: DIFFUSE LARGE B-CELL LYMPHOMA
     Dosage: 1400 MG (INFUSION RATE 250 ML/MIN)
     Route: 041
     Dates: start: 20171025, end: 20171025
  18. RANITIDIN [Concomitant]
     Active Substance: RANITIDINE HYDROCHLORIDE
     Route: 042
     Dates: start: 20171205, end: 20171205
  19. KEVATRIL [Concomitant]
     Active Substance: GRANISETRON HYDROCHLORIDE
     Route: 042
     Dates: start: 20171116, end: 20171116
  20. KEVATRIL [Concomitant]
     Active Substance: GRANISETRON HYDROCHLORIDE
     Route: 042
     Dates: start: 20171207, end: 20171207
  21. MESNA. [Concomitant]
     Active Substance: MESNA
     Route: 042
     Dates: start: 20171206, end: 20171206
  22. PREDNISOLUT [Concomitant]
     Active Substance: PREDNISOLONE
     Indication: PROPHYLAXIS
     Route: 048
     Dates: start: 20171020, end: 20171024
  23. PREDNISOLUT [Concomitant]
     Active Substance: PREDNISOLONE
     Route: 042
     Dates: start: 20171114, end: 20171114
  24. CYCLOPHOSPHAMIDE. [Suspect]
     Active Substance: CYCLOPHOSPHAMIDE
     Dosage: 1400 MG (INFUSION RATE 4.17 ML/MIN)
     Route: 041
     Dates: start: 20171115, end: 20171115
  25. VINCRISTINE [Suspect]
     Active Substance: VINCRISTINE
     Dosage: 1 MG (INFUSION RATE 1 ML/MIN)
     Route: 041
     Dates: start: 20171025, end: 20171025
  26. RANITIDIN [Concomitant]
     Active Substance: RANITIDINE HYDROCHLORIDE
     Route: 042
     Dates: start: 20171114, end: 20171114
  27. ALLOPURINOL. [Concomitant]
     Active Substance: ALLOPURINOL
     Indication: PROPHYLAXIS
     Route: 048
     Dates: start: 20171020
  28. ACICLOVIRUM [Concomitant]
     Indication: PROPHYLAXIS
     Route: 048
     Dates: start: 20171024
  29. PARACETAMOL [Concomitant]
     Active Substance: ACETAMINOPHEN
     Route: 048
     Dates: start: 20171114, end: 20171114
  30. DOXORUBICIN [Suspect]
     Active Substance: DOXORUBICIN
     Indication: DIFFUSE LARGE B-CELL LYMPHOMA
     Dosage: 95 MG (INFUSION RATE 8.3 ML/MIN)
     Route: 041
     Dates: start: 20171025, end: 20171025
  31. VINCRISTINE [Suspect]
     Active Substance: VINCRISTINE
     Dosage: 1 MG (INFUSION RATE 1 ML/MIN)
     Route: 041
     Dates: start: 20171206, end: 20171206
  32. KEVATRIL [Concomitant]
     Active Substance: GRANISETRON HYDROCHLORIDE
     Route: 042
     Dates: start: 20171026, end: 20171026
  33. BISOPROLOL [Concomitant]
     Active Substance: BISOPROLOL
     Indication: HYPERTENSION
     Route: 048
     Dates: start: 20170530
  34. ASPIRIN. [Concomitant]
     Active Substance: ASPIRIN
     Indication: HYPERTENSION
     Route: 048
     Dates: start: 20170530, end: 20171107
  35. PREDNISOLUT [Concomitant]
     Active Substance: PREDNISOLONE
     Route: 042
     Dates: start: 20171024, end: 20171024
  36. PANTOZOL [Concomitant]
     Active Substance: PANTOPRAZOLE SODIUM
     Indication: PROPHYLAXIS
     Route: 048
     Dates: start: 20171024
  37. VINCRISTINE [Suspect]
     Active Substance: VINCRISTINE
     Dosage: 1 MG (INFUSION RATE 5 ML/MIN)
     Route: 041
     Dates: start: 20171115, end: 20171115
  38. KEVATRIL [Concomitant]
     Active Substance: GRANISETRON HYDROCHLORIDE
     Route: 042
     Dates: start: 20171025, end: 20171025
  39. AMPHO MORONAL [Concomitant]
     Active Substance: AMPHOTERICIN B
     Indication: PROPHYLAXIS
     Route: 048
     Dates: start: 20171029, end: 20171105
  40. TAVEGIL [Concomitant]
     Active Substance: CLEMASTINE FUMARATE
     Route: 042
     Dates: start: 20171114, end: 20171114
  41. TAVEGIL [Concomitant]
     Active Substance: CLEMASTINE FUMARATE
     Route: 042
     Dates: start: 20171205, end: 20171205
  42. PARACETAMOL [Concomitant]
     Active Substance: ACETAMINOPHEN
     Route: 048
     Dates: start: 20171205, end: 20171205
  43. COTRIM [Concomitant]
     Active Substance: SULFAMETHOXAZOLE\TRIMETHOPRIM
     Indication: PROPHYLAXIS
     Route: 048
     Dates: start: 20171024
  44. FRESUBIN [Concomitant]
     Active Substance: AMINO ACIDS\DEXTROSE\ELECTROLYTES NOS\SOYBEAN OIL\VITAMINS
     Indication: PRODUCT USED FOR UNKNOWN INDICATION
     Route: 048
     Dates: start: 20171206
  45. DOXORUBICIN [Suspect]
     Active Substance: DOXORUBICIN
     Dosage: 95 MG (INFUSION RATE 8.3 ML/MIN)
     Route: 041
     Dates: start: 20171206, end: 20171206
  46. PREDNISONE. [Suspect]
     Active Substance: PREDNISONE
     Route: 048
     Dates: start: 20171115, end: 20171115
  47. RIXIMYO [Suspect]
     Active Substance: RITUXIMAB
     Indication: DIFFUSE LARGE B-CELL LYMPHOMA
     Dosage: 700 MG (INFUSION RATE 2.25 ML/MIN)
     Route: 041
     Dates: start: 20171024, end: 20171024
  48. SEVIKAR [Concomitant]
     Active Substance: AMLODIPINE BESYLATE\OLMESARTAN MEDOXOMIL
     Indication: HYPERTENSION
     Route: 048
     Dates: start: 20170530
  49. KEVATRIL [Concomitant]
     Active Substance: GRANISETRON HYDROCHLORIDE
     Indication: PROPHYLAXIS
     Route: 065
     Dates: start: 20171020, end: 20171020
  50. KEVATRIL [Concomitant]
     Active Substance: GRANISETRON HYDROCHLORIDE
     Route: 042
     Dates: start: 20171115, end: 20171115
  51. AMPHO MORONAL [Concomitant]
     Active Substance: AMPHOTERICIN B
     Route: 048
     Dates: start: 20171114, end: 20171120
  52. PARACETAMOL [Concomitant]
     Active Substance: ACETAMINOPHEN
     Indication: PROPHYLAXIS
     Route: 048
     Dates: start: 20171024, end: 20171024

REACTIONS (11)
  - Irritability [Unknown]
  - Asthenia [Unknown]
  - Haemoglobin decreased [Unknown]
  - Depression [Unknown]
  - Insomnia [Unknown]
  - Pulmonary embolism [Not Recovered/Not Resolved]
  - Anxiety [Unknown]
  - Decreased appetite [Unknown]
  - Red blood cell count decreased [Unknown]
  - Neutrophil count increased [Recovered/Resolved]
  - Fatigue [Unknown]

NARRATIVE: CASE EVENT DATE: 20171024
